FAERS Safety Report 4585324-X (Version None)
Quarter: 2005Q1

REPORT INFORMATION
  Report Type: 
  Country: None (occurrence: None)
  Receive Date: 20050214
  Receipt Date: 20041007
  Transmission Date: 20050727
  Serious: Yes (Hospitalization)
  Sender: FDA-Public Use
  Company Number: 05-082

PATIENT
  Age: 44 Year
  Sex: Female

DRUGS (7)
  1. DEXAMETHASONE [Suspect]
     Indication: MULTIPLE MYELOMA
     Dosage: 40 MG/DAY
     Dates: start: 20021107, end: 20021124
  2. DEXAMETHASONE [Suspect]
     Indication: MYELOMA RECURRENCE
     Dosage: 40 MG/DAY
     Dates: start: 20021107, end: 20021124
  3. GENASENSE [Concomitant]
  4. RANITIDINE [Concomitant]
  5. SIMVASTATIN [Concomitant]
  6. IBUPROFEN [Concomitant]
  7. LEVOFLOXACIN [Concomitant]

REACTIONS (9)
  - BRONCHITIS ACUTE [None]
  - CHILLS [None]
  - HEADACHE [None]
  - MALAISE [None]
  - MYALGIA [None]
  - PLEURITIC PAIN [None]
  - PRODUCTIVE COUGH [None]
  - PYREXIA [None]
  - SPUTUM DISCOLOURED [None]
